FAERS Safety Report 17225475 (Version 1)
Quarter: 2020Q1

REPORT INFORMATION
  Report Type: Report from Study
  Country: JP (occurrence: JP)
  Receive Date: 20200102
  Receipt Date: 20200102
  Transmission Date: 20200409
  Serious: Yes (Other)
  Sender: FDA-Public Use
  Company Number: JP-EMD SERONO-9123511

PATIENT
  Age: 76 Year
  Sex: Male

DRUGS (1)
  1. BAVENCIO [Suspect]
     Active Substance: AVELUMAB
     Indication: NEUROENDOCRINE CARCINOMA OF THE SKIN
     Route: 041
     Dates: start: 20190409, end: 20190802

REACTIONS (1)
  - Cerebellar ataxia [Not Recovered/Not Resolved]

NARRATIVE: CASE EVENT DATE: 20190802
